FAERS Safety Report 23971129 (Version 2)
Quarter: 2024Q3

REPORT INFORMATION
  Report Type: Spontaneous
  Country: US (occurrence: US)
  Receive Date: 20240613
  Receipt Date: 20240814
  Transmission Date: 20241016
  Serious: No
  Sender: CIPLA
  Company Number: US-CIPLA LTD.-2024US05509

PATIENT

DRUGS (2)
  1. ALBUTEROL [Suspect]
     Active Substance: ALBUTEROL
     Indication: Bronchiolitis
     Dosage: UNK, 2 PUFFS EVERY 6 HOURS DAY (BUT SHE TOOK IT ONLY ONCE IN A DAY) INHALE ORALLY BY MOUTH
     Dates: start: 20240521, end: 202405
  2. PROGESTERONE [Concomitant]
     Active Substance: PROGESTERONE
     Indication: Hormone replacement therapy
     Dosage: UNK, BID (50 MG AT NIGHT, 25 MG IN MORNING, (START DATE: 2013 OR 2015 WAS NOT SURE))
     Route: 065

REACTIONS (9)
  - Drug ineffective [Not Recovered/Not Resolved]
  - Adverse event [Unknown]
  - Feeling jittery [Recovered/Resolved]
  - Fear [Recovered/Resolved]
  - Feeling abnormal [Unknown]
  - Cough [Not Recovered/Not Resolved]
  - Hypersensitivity [Unknown]
  - Heart rate increased [Unknown]
  - Tremor [Recovered/Resolved]

NARRATIVE: CASE EVENT DATE: 20240501
